FAERS Safety Report 12772581 (Version 1)
Quarter: 2016Q3

REPORT INFORMATION
  Report Type: Report from Study
  Country: US (occurrence: US)
  Receive Date: 20160922
  Receipt Date: 20160922
  Transmission Date: 20161109
  Serious: Yes (Death, Hospitalization, Other)
  Sender: FDA-Public Use
  Company Number: US-ABBVIE-16K-163-1734726-00

PATIENT
  Age: 82 Year
  Sex: Female

DRUGS (2)
  1. HUMIRA [Suspect]
     Active Substance: ADALIMUMAB
     Indication: CROHN^S DISEASE
     Route: 058
  2. HUMIRA [Suspect]
     Active Substance: ADALIMUMAB
     Route: 058
     Dates: start: 20160824

REACTIONS (3)
  - Hip arthroplasty [Unknown]
  - Death [Fatal]
  - Hospitalisation [Unknown]

NARRATIVE: CASE EVENT DATE: 20160827
